FAERS Safety Report 15053387 (Version 2)
Quarter: 2018Q2

REPORT INFORMATION
  Report Type: Report from Study
  Country: BR (occurrence: BR)
  Receive Date: 20180622
  Receipt Date: 20180627
  Transmission Date: 20180711
  Serious: Yes (Life-Threatening, Hospitalization, Other)
  Sender: FDA-Public Use
  Company Number: BR-JNJFOC-20180211290

PATIENT
  Sex: Female

DRUGS (3)
  1. INFLIXIMAB, RECOMBINANT [Suspect]
     Active Substance: INFLIXIMAB
     Indication: RHEUMATOID ARTHRITIS
     Route: 042
  2. INFLIXIMAB, RECOMBINANT [Suspect]
     Active Substance: INFLIXIMAB
     Indication: RHEUMATOID ARTHRITIS
     Route: 042
  3. INFLIXIMAB, RECOMBINANT [Suspect]
     Active Substance: INFLIXIMAB
     Indication: RHEUMATOID ARTHRITIS
     Route: 042

REACTIONS (7)
  - Osteoarthritis [Not Recovered/Not Resolved]
  - Tuberculosis [Recovered/Resolved]
  - Drug ineffective [Unknown]
  - Hypoacusis [Unknown]
  - Depression [Recovering/Resolving]
  - Suicidal ideation [Unknown]
  - Weight decreased [Unknown]

NARRATIVE: CASE EVENT DATE: 2014
